APPROVED DRUG PRODUCT: ARIPIPRAZOLE
Active Ingredient: ARIPIPRAZOLE
Strength: 15MG
Dosage Form/Route: TABLET;ORAL
Application: A091279 | Product #004
Applicant: AIPING PHARMACEUTICAL INC
Approved: Jan 9, 2017 | RLD: No | RS: No | Type: DISCN